FAERS Safety Report 23328062 (Version 14)
Quarter: 2025Q3

REPORT INFORMATION
  Report Type: Report from Study
  Country: US (occurrence: US)
  Receive Date: 20231221
  Receipt Date: 20250730
  Transmission Date: 20251021
  Serious: Yes (Hospitalization, Other)
  Sender: SANDOZ
  Company Number: US-002147023-NVSC2020US164824

PATIENT
  Age: 61 Year
  Sex: Female
  Weight: 56.236 kg

DRUGS (56)
  1. ADEMPAS [Suspect]
     Active Substance: RIOCIGUAT
     Dosage: 0.5 MG, TID
     Route: 065
  2. ADEMPAS [Suspect]
     Active Substance: RIOCIGUAT
     Route: 065
  3. ADEMPAS [Suspect]
     Active Substance: RIOCIGUAT
     Route: 065
  4. ADEMPAS [Suspect]
     Active Substance: RIOCIGUAT
     Indication: Product used for unknown indication
     Route: 065
  5. ADEMPAS [Suspect]
     Active Substance: RIOCIGUAT
     Route: 065
  6. AMBRISENTAN [Suspect]
     Active Substance: AMBRISENTAN
     Indication: Pulmonary arterial hypertension
     Dosage: 10 MG, QD
     Route: 065
  7. AMBRISENTAN [Suspect]
     Active Substance: AMBRISENTAN
     Dosage: 5 MG, QD
     Route: 065
  8. SOTATERCEPT [Suspect]
     Active Substance: SOTATERCEPT
     Indication: Product used for unknown indication
     Route: 065
  9. TREPROSTINIL [Suspect]
     Active Substance: TREPROSTINIL
     Route: 042
  10. TREPROSTINIL [Suspect]
     Active Substance: TREPROSTINIL
     Route: 042
  11. TREPROSTINIL [Suspect]
     Active Substance: TREPROSTINIL
     Route: 042
  12. TREPROSTINIL [Suspect]
     Active Substance: TREPROSTINIL
     Route: 042
  13. TREPROSTINIL [Suspect]
     Active Substance: TREPROSTINIL
     Route: 042
  14. TREPROSTINIL [Suspect]
     Active Substance: TREPROSTINIL
     Route: 042
  15. TREPROSTINIL [Suspect]
     Active Substance: TREPROSTINIL
     Indication: Pulmonary arterial hypertension
     Route: 065
     Dates: start: 20200313
  16. TREPROSTINIL [Suspect]
     Active Substance: TREPROSTINIL
     Route: 042
  17. TREPROSTINIL [Suspect]
     Active Substance: TREPROSTINIL
     Route: 042
  18. TREPROSTINIL [Suspect]
     Active Substance: TREPROSTINIL
     Route: 042
  19. TREPROSTINIL [Suspect]
     Active Substance: TREPROSTINIL
     Route: 042
  20. TREPROSTINIL [Suspect]
     Active Substance: TREPROSTINIL
     Route: 042
  21. TREPROSTINIL [Suspect]
     Active Substance: TREPROSTINIL
     Route: 042
  22. TREPROSTINIL [Suspect]
     Active Substance: TREPROSTINIL
     Route: 042
  23. TREPROSTINIL [Suspect]
     Active Substance: TREPROSTINIL
     Route: 042
  24. TREPROSTINIL [Suspect]
     Active Substance: TREPROSTINIL
     Route: 042
  25. TREPROSTINIL [Suspect]
     Active Substance: TREPROSTINIL
     Route: 042
  26. TREPROSTINIL [Suspect]
     Active Substance: TREPROSTINIL
     Route: 042
  27. TREPROSTINIL [Suspect]
     Active Substance: TREPROSTINIL
     Route: 042
  28. TREPROSTINIL [Suspect]
     Active Substance: TREPROSTINIL
     Route: 042
  29. ADCIRCA [Concomitant]
     Active Substance: TADALAFIL
     Indication: Pulmonary arterial hypertension
     Route: 065
  30. AMLODIPINE BESYLATE [Concomitant]
     Active Substance: AMLODIPINE BESYLATE
     Indication: Product used for unknown indication
     Route: 065
  31. BUTALBITAL, ACETAMINOPHEN, AND CAFFEINE [Concomitant]
     Active Substance: ACETAMINOPHEN\BUTALBITAL\CAFFEINE
     Indication: Product used for unknown indication
     Route: 065
  32. BUTALBITAL, ACETAMINOPHEN, AND CAFFEINE [Concomitant]
     Active Substance: ACETAMINOPHEN\BUTALBITAL\CAFFEINE
     Indication: Product used for unknown indication
     Route: 065
  33. CETIRIZINE HCL [Concomitant]
     Active Substance: CETIRIZINE HYDROCHLORIDE
     Indication: Product used for unknown indication
     Route: 065
  34. DOXYCYCLINE HYCLATE [Concomitant]
     Active Substance: DOXYCYCLINE HYCLATE
     Indication: Product used for unknown indication
     Route: 065
  35. FLUTICASONE PROPIONATE [Concomitant]
     Active Substance: FLUTICASONE PROPIONATE
     Indication: Product used for unknown indication
     Route: 065
  36. FUROSEMIDE [Concomitant]
     Active Substance: FUROSEMIDE
     Indication: Product used for unknown indication
     Route: 065
  37. IBUPROFEN [Concomitant]
     Active Substance: IBUPROFEN
     Indication: Product used for unknown indication
     Route: 065
  38. IBUPROFEN [Concomitant]
     Active Substance: IBUPROFEN
     Indication: Product used for unknown indication
     Route: 065
  39. MAGNESIUM [Concomitant]
     Active Substance: MAGNESIUM
     Indication: Product used for unknown indication
     Route: 065
  40. MONTELUKAST SODIUM [Concomitant]
     Active Substance: MONTELUKAST SODIUM
     Indication: Product used for unknown indication
     Route: 065
  41. MONTELUKAST SODIUM [Concomitant]
     Active Substance: MONTELUKAST SODIUM
     Indication: Product used for unknown indication
     Route: 065
  42. VITAMINS [Concomitant]
     Active Substance: VITAMINS
     Indication: Product used for unknown indication
     Route: 065
  43. OMEPRAZOLE [Concomitant]
     Active Substance: OMEPRAZOLE
     Indication: Product used for unknown indication
     Route: 065
  44. OPSUMIT [Concomitant]
     Active Substance: MACITENTAN
     Indication: Product used for unknown indication
     Route: 065
  45. POTASSIUM CHLORIDE [Concomitant]
     Active Substance: POTASSIUM CHLORIDE
     Indication: Product used for unknown indication
     Route: 065
  46. POTASSIUM CHLORIDE [Concomitant]
     Active Substance: POTASSIUM CHLORIDE
     Indication: Product used for unknown indication
     Route: 065
  47. ROSUVASTATIN CALCIUM [Concomitant]
     Active Substance: ROSUVASTATIN CALCIUM
     Indication: Product used for unknown indication
     Route: 065
  48. ROSUVASTATIN CALCIUM [Concomitant]
     Active Substance: ROSUVASTATIN CALCIUM
     Indication: Product used for unknown indication
     Route: 065
  49. SILDENAFIL CITRATE [Concomitant]
     Active Substance: SILDENAFIL CITRATE
     Indication: Product used for unknown indication
     Route: 065
  50. SIMVASTATIN [Concomitant]
     Active Substance: SIMVASTATIN
     Indication: Product used for unknown indication
     Route: 065
  51. SINGULAIR [Concomitant]
     Active Substance: MONTELUKAST SODIUM
     Indication: Product used for unknown indication
     Route: 065
  52. TADALAFIL [Concomitant]
     Active Substance: TADALAFIL
     Indication: Product used for unknown indication
     Route: 065
  53. TOPIRAMATE [Concomitant]
     Active Substance: TOPIRAMATE
     Indication: Product used for unknown indication
     Route: 065
  54. TOPIRAMATE [Concomitant]
     Active Substance: TOPIRAMATE
     Indication: Product used for unknown indication
     Route: 065
  55. VITAMIN D3 [Concomitant]
     Active Substance: CHOLECALCIFEROL
     Indication: Product used for unknown indication
     Route: 065
  56. WINREVAIR [Concomitant]
     Active Substance: SOTATERCEPT-CSRK
     Indication: Product used for unknown indication
     Route: 065

REACTIONS (34)
  - Infection [Unknown]
  - Complication associated with device [Unknown]
  - Dizziness [Unknown]
  - Headache [Unknown]
  - Dyspnoea [Recovering/Resolving]
  - Fatigue [Unknown]
  - Anal haemorrhage [Recovered/Resolved]
  - Blood pressure decreased [Unknown]
  - Catheterisation cardiac [Unknown]
  - Eye swelling [Unknown]
  - Muscular weakness [Unknown]
  - Pain [Unknown]
  - Feeling abnormal [Unknown]
  - Catheter site discharge [Unknown]
  - Catheter site pruritus [Unknown]
  - Chest discomfort [Unknown]
  - Lethargy [Unknown]
  - COVID-19 [Not Recovered/Not Resolved]
  - Cough [Unknown]
  - Anosmia [Unknown]
  - Ageusia [Unknown]
  - Abdominal tenderness [Unknown]
  - Dyspepsia [Unknown]
  - Nasal congestion [Unknown]
  - Malaise [Unknown]
  - Abdominal pain upper [Unknown]
  - Dizziness [Unknown]
  - Pain in jaw [Unknown]
  - Oedema peripheral [Unknown]
  - Pain in extremity [Unknown]
  - Dyspnoea exertional [Unknown]
  - Nausea [Unknown]
  - Diarrhoea [Unknown]
  - Headache [Unknown]

NARRATIVE: CASE EVENT DATE: 20210413
